FAERS Safety Report 4333805-6 (Version None)
Quarter: 2004Q2

REPORT INFORMATION
  Report Type: 
  Country: None (occurrence: None)
  Receive Date: 20040402
  Receipt Date: 20040323
  Transmission Date: 20050107
  Serious: Yes (Hospitalization)
  Sender: FDA-Public Use
  Company Number: DE-JNJFOC-20040305403

PATIENT
  Age: 82 Year
  Sex: Female

DRUGS (2)
  1. RISPERDAL [Suspect]
     Indication: AGGRESSION
     Dosage: 1/2 PIPETTE DAILY
  2. INSULIN [Concomitant]

REACTIONS (4)
  - AGGRESSION [None]
  - ASTHENIA [None]
  - FALL [None]
  - SUICIDE ATTEMPT [None]
